FAERS Safety Report 9300996 (Version 1)
Quarter: 2013Q2

REPORT INFORMATION
  Report Type: Spontaneous
  Country: US (occurrence: US)
  Receive Date: 20130521
  Receipt Date: 20130521
  Transmission Date: 20140414
  Serious: No
  Sender: FDA-Public Use
  Company Number: US-PFIZER INC-2013154442

PATIENT
  Sex: Male
  Weight: 86.17 kg

DRUGS (3)
  1. LYRICA [Suspect]
     Indication: PERIPHERAL NERVE INJURY
     Dosage: 150 MG, 2X/DAY
  2. MORPHINE [Concomitant]
     Indication: MYALGIA
     Dosage: UNK, 2X/DAY
  3. MORPHINE [Concomitant]
     Indication: MUSCLE SPASMS

REACTIONS (1)
  - Pain [Unknown]
